FAERS Safety Report 5638000-6 (Version None)
Quarter: 2008Q1

REPORT INFORMATION
  Report Type: 
  Country: None (occurrence: None)
  Receive Date: 20080226
  Receipt Date: 20080220
  Transmission Date: 20080703
  Serious: Yes (Hospitalization)
  Sender: FDA-Public Use
  Company Number: PH-WYE-H02670308

PATIENT
  Age: 31 Year
  Sex: Male

DRUGS (3)
  1. SIROLIMUS [Suspect]
     Indication: RENAL TRANSPLANT
     Route: 048
     Dates: start: 20080129, end: 20080101
  2. SIROLIMUS [Suspect]
     Dosage: UNKNOWN
     Route: 048
     Dates: start: 20080101
  3. FENOFIBRATE [Concomitant]
     Dosage: UNKNOWN
     Dates: end: 20080101

REACTIONS (1)
  - RHABDOMYOLYSIS [None]
